FAERS Safety Report 14227898 (Version 12)
Quarter: 2023Q1

REPORT INFORMATION
  Report Type: Report from Study
  Country: CA (occurrence: CA)
  Receive Date: 20171127
  Receipt Date: 20230130
  Transmission Date: 20230418
  Serious: Yes (Hospitalization, Other)
  Sender: FDA-Public Use
  Company Number: CA-TAKEDA-2017TUS024205

PATIENT
  Age: 58 Year
  Sex: Female

DRUGS (29)
  1. VEDOLIZUMAB [Suspect]
     Active Substance: VEDOLIZUMAB
     Indication: Crohn^s disease
     Dosage: 300 MILLIGRAM
     Route: 042
     Dates: start: 20170613
  2. VEDOLIZUMAB [Suspect]
     Active Substance: VEDOLIZUMAB
     Dosage: 300 MILLIGRAM, Q4WEEKS
     Route: 042
     Dates: start: 20190611
  3. VEDOLIZUMAB [Suspect]
     Active Substance: VEDOLIZUMAB
     Dosage: 300 MILLIGRAM, Q4WEEKS
     Route: 042
  4. VEDOLIZUMAB [Suspect]
     Active Substance: VEDOLIZUMAB
     Dosage: 300 MILLIGRAM, Q4WEEKS
     Route: 042
  5. VEDOLIZUMAB [Suspect]
     Active Substance: VEDOLIZUMAB
     Dosage: 300 MILLIGRAM, Q4WEEKS
     Route: 042
  6. VEDOLIZUMAB [Suspect]
     Active Substance: VEDOLIZUMAB
     Dosage: 300 MILLIGRAM, Q4WEEKS
     Route: 042
  7. VEDOLIZUMAB [Suspect]
     Active Substance: VEDOLIZUMAB
     Dosage: 300 MILLIGRAM, Q4WEEKS
     Route: 042
  8. VEDOLIZUMAB [Suspect]
     Active Substance: VEDOLIZUMAB
     Dosage: 300 MILLIGRAM, Q4WEEKS
     Route: 042
  9. VEDOLIZUMAB [Suspect]
     Active Substance: VEDOLIZUMAB
     Dosage: 300 MILLIGRAM, Q4WEEKS
     Route: 042
  10. VEDOLIZUMAB [Suspect]
     Active Substance: VEDOLIZUMAB
     Dosage: 300 MILLIGRAM, Q4WEEKS
     Route: 042
  11. LASIX [Suspect]
     Active Substance: FUROSEMIDE
     Indication: Product used for unknown indication
     Dosage: UNK
     Route: 065
  12. LACTULOSE [Suspect]
     Active Substance: LACTULOSE
     Indication: Product used for unknown indication
     Dosage: 30 MILLIGRAM
     Route: 048
  13. DULCOLAX (BISACODYL) [Concomitant]
     Active Substance: BISACODYL
     Dosage: UNK
  14. LACTOSE [Concomitant]
     Active Substance: LACTOSE
     Dosage: UNK
  15. HYDROMORPHONE [Concomitant]
     Active Substance: HYDROMORPHONE
     Indication: Arthralgia
     Dosage: 2 MILLIGRAM, BID
  16. PREDNISONE [Concomitant]
     Active Substance: PREDNISONE
     Indication: Arthralgia
     Dosage: UNK
  17. SPIRONOLACTONE [Concomitant]
     Active Substance: SPIRONOLACTONE
     Dosage: 100 MILLIGRAM
     Route: 048
  18. FUROSEMIDE [Concomitant]
     Active Substance: FUROSEMIDE
     Indication: Abdominal distension
     Dosage: 140 MILLIGRAM
     Route: 048
  19. PANTOPRAZOLE SODIUM [Concomitant]
     Active Substance: PANTOPRAZOLE SODIUM
     Dosage: 40 MILLIGRAM, QD
     Route: 048
  20. BACLOFEN [Concomitant]
     Active Substance: BACLOFEN
     Indication: Muscle relaxant therapy
     Dosage: UNK
  21. BACLOFEN [Concomitant]
     Active Substance: BACLOFEN
     Indication: Muscle spasms
  22. RIFAXIMIN [Concomitant]
     Active Substance: RIFAXIMIN
     Indication: Inflammatory bowel disease
     Dosage: 500 MILLIGRAM
     Route: 048
  23. ONDANSETRON [Concomitant]
     Active Substance: ONDANSETRON
     Indication: Nausea
     Dosage: 8 MILLIGRAM
     Route: 048
  24. MAGNESIUM [Concomitant]
     Active Substance: MAGNESIUM
     Dosage: UNK UNK, 1/WEEK
  25. POTASSIUM [Concomitant]
     Active Substance: POTASSIUM
     Dosage: UNK
     Route: 048
  26. VENOFER [Concomitant]
     Active Substance: IRON SUCROSE
     Dosage: UNK UNK, MONTHLY
  27. BUPROPION [Concomitant]
     Active Substance: BUPROPION
     Dosage: 150 MILLIGRAM
     Route: 048
  28. NABILONE [Concomitant]
     Active Substance: NABILONE
     Dosage: 0.5 MILLIGRAM
     Route: 048
  29. DEXAMETHASONE [Concomitant]
     Active Substance: DEXAMETHASONE
     Dosage: UNK

REACTIONS (27)
  - Hepatic cirrhosis [Unknown]
  - Intestinal obstruction [Unknown]
  - Ascites [Not Recovered/Not Resolved]
  - Hepatic failure [Unknown]
  - Gastrointestinal disorder [Unknown]
  - Chronic hepatic failure [Unknown]
  - Electrolyte imbalance [Unknown]
  - Back disorder [Unknown]
  - Lethargy [Unknown]
  - Tremor [Unknown]
  - Blood magnesium decreased [Unknown]
  - Abdominal pain upper [Unknown]
  - Peripheral swelling [Unknown]
  - Oedema peripheral [Unknown]
  - Increased tendency to bruise [Unknown]
  - Malaise [Unknown]
  - Dyspnoea [Unknown]
  - Heart rate increased [Unknown]
  - Blood potassium decreased [Unknown]
  - Muscle spasms [Unknown]
  - Constipation [Unknown]
  - Abdominal distension [Unknown]
  - Frequent bowel movements [Unknown]
  - Arthralgia [Unknown]
  - Nausea [Unknown]
  - Product dose omission issue [Unknown]
  - Off label use [Unknown]

NARRATIVE: CASE EVENT DATE: 20170101
